FAERS Safety Report 9189915 (Version 1)
Quarter: 2013Q1

REPORT INFORMATION
  Report Type: Spontaneous
  Country: GB (occurrence: None)
  Receive Date: 20130322
  Receipt Date: 20130322
  Transmission Date: 20140127
  Serious: Yes (Disabling)
  Sender: FDA-Public Use
  Company Number: 1641442

PATIENT
  Age: 89 Year
  Sex: Male

DRUGS (5)
  1. (CEFTAZIDIME) [Suspect]
     Indication: URINARY TRACT INFECTION
     Route: 042
     Dates: start: 20130228, end: 20130305
  2. (BUDESONIDE W/FORMOTEROL FUMARATE) [Concomitant]
  3. (TIOTROPIUM) [Concomitant]
  4. (ALCLOMETASONE DIPROPIONATE) [Concomitant]
  5. (OLIVE OIL) [Concomitant]

REACTIONS (1)
  - Depressed level of consciousness [None]
